FAERS Safety Report 5742917-1 (Version None)
Quarter: 2008Q2

REPORT INFORMATION
  Report Type: 
  Country: None (occurrence: None)
  Receive Date: 20080515
  Receipt Date: 20080515
  Transmission Date: 20081010
  Serious: Yes (Other)
  Sender: FDA-Public Use
  Company Number: None

PATIENT
  Sex: Female
  Weight: 69.8539 kg

DRUGS (2)
  1. DIGITEK  0.25 MG  MYLAN  PHARMACEUTICALS [Suspect]
     Indication: ATRIAL FIBRILLATION
     Dosage: 1 TABLET BY MOUTH  1 TABLET PM DAILY
     Route: 048
     Dates: start: 20060117, end: 20061016
  2. DIGITEK  0.25 MG  MYLAN  PHARMACEUTICALS [Suspect]
     Indication: TACHYCARDIA
     Dosage: 1 TABLET BY MOUTH  1 TABLET PM DAILY
     Route: 048
     Dates: start: 20060117, end: 20061016

REACTIONS (8)
  - CONDITION AGGRAVATED [None]
  - DIZZINESS [None]
  - EXTRASYSTOLES [None]
  - HYPOTENSION [None]
  - NAUSEA [None]
  - PHARMACEUTICAL PRODUCT COMPLAINT [None]
  - VISION BLURRED [None]
  - WRONG TECHNIQUE IN DRUG USAGE PROCESS [None]
